FAERS Safety Report 6577918-7 (Version None)
Quarter: 2010Q1

REPORT INFORMATION
  Report Type: 
  Country: None (occurrence: None)
  Receive Date: 20100211
  Receipt Date: 20091203
  Transmission Date: 20100710
  Serious: No
  Sender: FDA-Public Use
  Company Number: FR-ROCHE-684712

PATIENT
  Sex: Male

DRUGS (2)
  1. TAMIFLU [Suspect]
     Dosage: RECEIVED FOR 2 DAYS
     Route: 065
  2. TAMIFLU [Suspect]
     Route: 065

REACTIONS (2)
  - MEDICATION ERROR [None]
  - NO ADVERSE EVENT [None]
